FAERS Safety Report 4390663-1 (Version None)
Quarter: 2004Q2

REPORT INFORMATION
  Report Type: 
  Country: None (occurrence: None)
  Receive Date: 20040630
  Receipt Date: 20040617
  Transmission Date: 20050107
  Serious: Yes (Disabling)
  Sender: FDA-Public Use
  Company Number: 2004010683

PATIENT
  Sex: Female

DRUGS (2)
  1. NARDIL [Suspect]
     Indication: DEPRESSION
     Dosage: 45 MG (15 MG, 3 IN 1 D), ORAL
     Route: 048
     Dates: start: 19870101
  2. PROVELLA-14 (ESTROGENS CONJUGATED, MEDROXYPROGESTERONE ACETATE) [Concomitant]

REACTIONS (12)
  - CONSTIPATION [None]
  - DEPRESSION [None]
  - DIARRHOEA [None]
  - DYSARTHRIA [None]
  - FAECAL INCONTINENCE [None]
  - FEELING ABNORMAL [None]
  - FLATULENCE [None]
  - MEDICATION ERROR [None]
  - PARAESTHESIA [None]
  - PHARMACEUTICAL PRODUCT COMPLAINT [None]
  - SOMNOLENCE [None]
  - TREMOR [None]
